FAERS Safety Report 21436194 (Version 3)
Quarter: 2022Q4

REPORT INFORMATION
  Report Type: Spontaneous
  Country: SE (occurrence: SE)
  Receive Date: 20221010
  Receipt Date: 20221212
  Transmission Date: 20230113
  Serious: Yes (Other)
  Sender: FDA-Public Use
  Company Number: SE-GLENMARK PHARMACEUTICALS-2022GMK074940

PATIENT

DRUGS (6)
  1. DESLORATADINE [Suspect]
     Active Substance: DESLORATADINE
     Indication: Seasonal allergy
     Dosage: 1 DOSAGE FORM, AM
     Route: 048
     Dates: start: 2020
  2. BUDESONIDE [Concomitant]
     Active Substance: BUDESONIDE
     Indication: Seasonal allergy
     Dosage: UNK
     Route: 065
  3. LECROLYN [Concomitant]
     Indication: Seasonal allergy
     Dosage: UNK
     Route: 065
  4. ALBUTEROL SULFATE [Concomitant]
     Active Substance: ALBUTEROL SULFATE
     Indication: Seasonal allergy
     Dosage: UNK
  5. ACETAMINOPHEN [Concomitant]
     Active Substance: ACETAMINOPHEN
     Indication: Headache
     Dosage: UNK, PRN ( 1-3 TABLETS A DAY FOR 1-3 DAYS, AS NEEDED)
     Route: 065
  6. ACETAMINOPHEN [Concomitant]
     Active Substance: ACETAMINOPHEN
     Indication: Headache
     Dosage: UNK, PRN (MAXIMUM 1-3 TABLETS A DAY FOR 1-3 DAYS, AS NEEDED)
     Route: 065

REACTIONS (5)
  - Retching [Unknown]
  - Foreign body in throat [Unknown]
  - Foreign body in mouth [Unknown]
  - Product use complaint [Unknown]
  - Product physical issue [Unknown]

NARRATIVE: CASE EVENT DATE: 20200101
